FAERS Safety Report 16313994 (Version 1)
Quarter: 2019Q2

REPORT INFORMATION
  Report Type: Spontaneous
  Country: US (occurrence: US)
  Receive Date: 20190515
  Receipt Date: 20190515
  Transmission Date: 20190711
  Serious: No
  Sender: FDA-Public Use
  Company Number: US-PFIZER INC-2019205741

PATIENT
  Sex: Female

DRUGS (1)
  1. METHOTREXATE SODIUM. [Suspect]
     Active Substance: METHOTREXATE SODIUM
     Indication: RHEUMATOID ARTHRITIS
     Dosage: UNK, WEEKLY (1 WEEKLY 10MG X 10)
     Dates: start: 2007, end: 2018

REACTIONS (4)
  - Abdominal discomfort [Unknown]
  - Blood count abnormal [Unknown]
  - Chills [Unknown]
  - Influenza [Unknown]
